FAERS Safety Report 9751721 (Version 1)
Quarter: 2013Q4

REPORT INFORMATION
  Report Type: Report from Study
  Country: CA (occurrence: CA)
  Receive Date: 20131213
  Receipt Date: 20131213
  Transmission Date: 20140711
  Serious: Yes (Death, Other)
  Sender: FDA-Public Use
  Company Number: CA-ROCHE-1316258

PATIENT
  Sex: 0

DRUGS (4)
  1. RIBAVIRIN [Suspect]
     Indication: HEPATITIS C
     Route: 065
  2. PEG-INTERFERON ALFA 2A [Suspect]
     Indication: HEPATITIS C
     Route: 065
  3. BOCEPREVIR [Suspect]
     Indication: HEPATITIS C
     Route: 065
  4. TELAPREVIR [Suspect]
     Indication: HEPATITIS C
     Route: 065

REACTIONS (6)
  - Infection [Fatal]
  - Myocardial infarction [Unknown]
  - Pancreatitis acute [Unknown]
  - No therapeutic response [Unknown]
  - Drug intolerance [Unknown]
  - Anaemia [Unknown]
